FAERS Safety Report 6147242-5 (Version None)
Quarter: 2009Q2

REPORT INFORMATION
  Report Type: 
  Country: None (occurrence: None)
  Receive Date: 20090408
  Receipt Date: 20090403
  Transmission Date: 20091009
  Serious: Yes (Disabling)
  Sender: FDA-Public Use
  Company Number: GB-TEVA-190365ISR

PATIENT
  Sex: Female

DRUGS (1)
  1. ALENDRONIC ACID [Suspect]
     Indication: OSTEOPOROSIS
     Route: 048
     Dates: start: 20060201, end: 20090301

REACTIONS (1)
  - FEMUR FRACTURE [None]
